FAERS Safety Report 9782583 (Version 2)
Quarter: 2013Q4

REPORT INFORMATION
  Report Type: Report from Study
  Country: US (occurrence: US)
  Receive Date: 20131226
  Receipt Date: 20131228
  Transmission Date: 20140711
  Serious: Yes (Life-Threatening, Hospitalization)
  Sender: FDA-Public Use
  Company Number: US-MERCK-1312USA010646

PATIENT
  Age: 43 Year
  Sex: Male
  Weight: 61 kg

DRUGS (14)
  1. VORINOSTAT [Suspect]
     Indication: HAEMATOPOIETIC NEOPLASM
     Dosage: CYCLE 1: 300 MG ON DAYS 1-5 CYCLE : 21
     Route: 048
     Dates: start: 20131112, end: 20131116
  2. VORINOSTAT [Suspect]
     Dosage: CYCLE 2: 300 MG ON DAYS 1-5 CYCLE : 21 MAXIMUM 6 CYCLES
     Route: 048
     Dates: start: 20131204, end: 20131208
  3. RITUXIMAB [Suspect]
     Indication: HAEMATOPOIETIC NEOPLASM
     Dosage: CYCLE 1, 375 MG/M2 ON DAY 1 OF A 21 DAY CYCLE
     Route: 042
     Dates: start: 20131112, end: 20131112
  4. RITUXIMAB [Suspect]
     Dosage: CYCLE 2, 375 MG/M2 ON DAY 1 OF A 21 DAY CYCLE
     Route: 042
     Dates: start: 20131204, end: 20131204
  5. CYCLOPHOSPHAMIDE [Suspect]
     Indication: HAEMATOPOIETIC NEOPLASM
     Dosage: UNK, ONCE
     Route: 042
     Dates: start: 20131116, end: 20131116
  6. CYCLOPHOSPHAMIDE [Suspect]
     Dosage: 375 MG/M2 -750MG/M2 IV OVER 1HOUR ON DAY 5 OF A 21 DAYS CYCLE
     Route: 042
     Dates: start: 20131208, end: 20131208
  7. DOXORUBICIN [Suspect]
     Indication: HAEMATOPOIETIC NEOPLASM
     Dosage: 10 MG/M2, QD
     Route: 042
     Dates: start: 20131112, end: 20131115
  8. DOXORUBICIN [Suspect]
     Dosage: 10 MG/M2, QD
     Route: 042
     Dates: start: 20131204, end: 20131207
  9. VINCRISTINE [Suspect]
     Indication: HAEMATOPOIETIC NEOPLASM
     Dosage: CYCLE 1: 0.4MG/M2/DAY CONTINUOUS IV INFUSION OVER 96 HOUR ON DAYS 1-4
     Route: 042
     Dates: start: 20131112, end: 20131115
  10. VINCRISTINE [Suspect]
     Dosage: CYCLE 2: 0.4MG/M2/DAY CONTINUOUS IV INFUSION OVER 96 HOUR ON DAYS 1-4
     Route: 042
     Dates: start: 20131204, end: 20131207
  11. PREDNISONE [Suspect]
     Indication: HAEMATOPOIETIC NEOPLASM
     Dosage: CYCLE 1: 60 MG/M2/DAY PO ON DAYS 1-5
     Route: 048
     Dates: start: 20131112, end: 20131116
  12. PREDNISONE [Suspect]
     Dosage: CYCLE 2: 60 MG/M2/DAY PO ON DAYS 1-5
     Route: 048
     Dates: start: 20131204, end: 20131208
  13. ETOPOSIDE [Suspect]
     Indication: HAEMATOPOIETIC NEOPLASM
     Dosage: CYCLE 1: 50MG/M2/DAY CONTINUOUS IV INFUSION OVER 96 HOUR ON DAYS 1-4
     Route: 042
     Dates: start: 20131112, end: 20131115
  14. ETOPOSIDE [Suspect]
     Dosage: CYCLE 2: 50MG/M2/DAY CONTINUOUS IV INFUSION OVER 96 HOUR ON DAYS 1-4
     Route: 042
     Dates: start: 20131204, end: 20131207

REACTIONS (3)
  - Platelet count decreased [Recovered/Resolved]
  - Lymphocyte count decreased [Recovered/Resolved]
  - Hyperglycaemia [Recovered/Resolved]
